FAERS Safety Report 9265092 (Version 1)
Quarter: 2013Q2

REPORT INFORMATION
  Report Type: Spontaneous
  Country: DE (occurrence: None)
  Receive Date: 20130429
  Receipt Date: 20130429
  Transmission Date: 20140414
  Serious: Yes (Death, Hospitalization, Other)
  Sender: FDA-Public Use
  Company Number: GER/GER/13/0029104

PATIENT
  Sex: Female

DRUGS (8)
  1. CITALOPRAM (CITALOPRAM) [Suspect]
     Indication: PRODUCT USED FOR UNKNOWN INDICATION
     Dates: start: 2010
  2. MELPERONE (MELPERONE) [Suspect]
     Indication: PRODUCT USED FOR UNKNOWN INDICATION
     Route: 048
     Dates: start: 20130101, end: 20130207
  3. BELOC ZOK (METOPROLOL SUCCINATE) [Suspect]
     Indication: PRODUCT USED FOR UNKNOWN INDICATION
     Route: 048
     Dates: end: 20130216
  4. TREVILOR [Suspect]
     Indication: PRODUCT USED FOR UNKNOWN INDICATION
     Dates: start: 2010, end: 20121219
  5. DOMINAL [Suspect]
     Indication: PRODUCT USED FOR UNKNOWN INDICATION
     Route: 048
     Dates: start: 2010, end: 20130216
  6. RAMIPRIL (RAMIPRIL) [Concomitant]
  7. VIGANTOLETTEN (COLECALCIFEROL) [Concomitant]
  8. SCHWEDENTABLETTEN (SODIUM CHLORIDE) [Concomitant]

REACTIONS (10)
  - Malaise [None]
  - Vertigo [None]
  - Asthenia [None]
  - Decreased appetite [None]
  - Hyponatraemia [None]
  - Cardiac arrest [None]
  - QRS axis abnormal [None]
  - Depression [None]
  - Bundle branch block right [None]
  - Bundle branch block left [None]
